FAERS Safety Report 8443906-9 (Version None)
Quarter: 2012Q2

REPORT INFORMATION
  Report Type: 
  Country: None (occurrence: None)
  Receive Date: 20120618
  Receipt Date: 20120605
  Transmission Date: 20120825
  Serious: Yes (Hospitalization)
  Sender: FDA-Public Use
  Company Number: US-BAYER-2012-055750

PATIENT
  Age: 16 Year
  Sex: Female
  Weight: 111 kg

DRUGS (15)
  1. AZITHROMYCIN [Concomitant]
     Dosage: 250 MG, UNK
     Route: 048
  2. OLOPATADINE HCL [Concomitant]
     Indication: MULTIPLE ALLERGIES
     Dosage: 0.6%, BID
     Route: 045
     Dates: start: 20091123
  3. YAZ [Suspect]
     Indication: POLYCYSTIC OVARIES
     Dosage: 1 TABLET DAILY
     Dates: start: 20070625, end: 20100118
  4. LISINOPRIL HYDROCHLORTHIAZID [Concomitant]
  5. PROTONIX [Concomitant]
     Indication: GASTROOESOPHAGEAL REFLUX DISEASE
     Dosage: 40 MG, DAILY
     Route: 048
  6. METFORMIN HCL [Concomitant]
     Indication: POLYCYSTIC OVARIES
     Dosage: 500 MG, BID
     Route: 048
     Dates: start: 20070101
  7. CELEBREX [Concomitant]
     Dosage: UNK
     Dates: start: 20091222
  8. PERCOCET [Concomitant]
     Indication: PAIN
     Dosage: 5/325 1-2 EVERY 4 HOURS AS NEEDED.
     Route: 048
  9. LISINOPRIL [Concomitant]
     Indication: HYPERTENSION
     Dosage: 20 MG, UNK
     Route: 048
     Dates: start: 20060101
  10. VERAMYST [Concomitant]
     Indication: MULTIPLE ALLERGIES
     Dosage: 27.5 ?G, DAILY, UNK
     Route: 045
     Dates: start: 20091123
  11. PHENERGAN [Concomitant]
     Indication: NAUSEA
     Dosage: 25 MG, Q4HR
     Route: 048
     Dates: start: 20091222
  12. OMEPRAZOLE [Concomitant]
     Dosage: 20 MG, UNK
     Route: 048
  13. KEFLEX [Concomitant]
     Dosage: UNK
     Dates: start: 20091222
  14. AMOXICILLIN [Concomitant]
     Indication: SINUSITIS
     Dosage: 770 MG, FOR 10 DAYS
     Route: 048
     Dates: start: 20091123
  15. ZYRTEC [Concomitant]
     Indication: MULTIPLE ALLERGIES
     Dosage: 10 MG, DAILY
     Route: 048
     Dates: start: 20091123

REACTIONS (4)
  - DEEP VEIN THROMBOSIS [None]
  - PAIN [None]
  - INJURY [None]
  - PAIN IN EXTREMITY [None]
